FAERS Safety Report 10021222 (Version 1)
Quarter: 2014Q1

REPORT INFORMATION
  Report Type: Spontaneous
  Country: US (occurrence: None)
  Receive Date: 20140318
  Receipt Date: 20140318
  Transmission Date: 20141002
  Serious: Yes (Other)
  Sender: FDA-Public Use
  Company Number: None

PATIENT
  Age: 86 Year
  Sex: Male
  Weight: 68.49 kg

DRUGS (3)
  1. LISINOPRIL [Suspect]
  2. IBUPROFEN [Suspect]
  3. MELOXICAM [Suspect]

REACTIONS (1)
  - Renal failure acute [None]
